FAERS Safety Report 5660623-9 (Version None)
Quarter: 2008Q1

REPORT INFORMATION
  Report Type: 
  Country: None (occurrence: None)
  Receive Date: 20080311
  Receipt Date: 20080305
  Transmission Date: 20080703
  Serious: Yes (Other)
  Sender: FDA-Public Use
  Company Number: US-BAYER-200812407NA

PATIENT
  Age: 27 Year
  Sex: Female
  Weight: 102 kg

DRUGS (2)
  1. MIRENA [Suspect]
     Indication: CONTRACEPTION
     Route: 015
     Dates: start: 20070723, end: 20080107
  2. LIBRAX [Concomitant]
     Indication: IRRITABLE BOWEL SYNDROME
     Dates: start: 20060901

REACTIONS (5)
  - PELVIC DISCOMFORT [None]
  - PELVIC PAIN [None]
  - UTERINE RUPTURE [None]
  - VAGINAL HAEMORRHAGE [None]
  - VULVOVAGINAL DISCOMFORT [None]
